FAERS Safety Report 19887039 (Version 1)
Quarter: 2021Q3

REPORT INFORMATION
  Report Type: Other
  Country: NL (occurrence: NL)
  Receive Date: 20210928
  Receipt Date: 20210928
  Transmission Date: 20211014
  Serious: Yes (Other)
  Sender: FDA-Public Use
  Company Number: NL-ROCHE-2918369

PATIENT
  Age: 48 Year
  Sex: Female

DRUGS (8)
  1. CYCLOPHOSPHAMIDE. [Concomitant]
     Active Substance: CYCLOPHOSPHAMIDE
  2. MARGETUXIMAB. [Concomitant]
     Active Substance: MARGETUXIMAB
  3. VINORELBINE [Concomitant]
     Active Substance: VINORELBINE TARTRATE
  4. PERTUZUMAB. [Concomitant]
     Active Substance: PERTUZUMAB
  5. TRASTUZUMAB. [Concomitant]
     Active Substance: TRASTUZUMAB
     Route: 065
  6. DEXAMETHASONE. [Concomitant]
     Active Substance: DEXAMETHASONE
  7. TRASTUZUMAB EMTANSINE [Suspect]
     Active Substance: ADO-TRASTUZUMAB EMTANSINE
     Indication: HER2 POSITIVE BREAST CANCER
     Route: 065
  8. DOCETAXEL. [Concomitant]
     Active Substance: DOCETAXEL

REACTIONS (5)
  - Metastases to central nervous system [Unknown]
  - Dizziness [Unknown]
  - Thrombocytopenia [Unknown]
  - Nausea [Unknown]
  - Headache [Unknown]
